FAERS Safety Report 6307988-2 (Version None)
Quarter: 2009Q3

REPORT INFORMATION
  Report Type: 
  Country: None (occurrence: None)
  Receive Date: 20090813
  Receipt Date: 20090807
  Transmission Date: 20100115
  Serious: Yes (Other)
  Sender: FDA-Public Use
  Company Number: CN-ASTRAZENECA-2009SE07138

PATIENT
  Age: 28 Year
  Sex: Female
  Weight: 60 kg

DRUGS (3)
  1. PROPOFOL [Suspect]
     Indication: SEDATION
     Route: 042
  2. LIDOCAINE [Concomitant]
     Dosage: 1% LIDOCAINE WITH 0.25% DICAINE 9 ML
     Route: 008
  3. DICAINE [Concomitant]
     Route: 008

REACTIONS (6)
  - BLOOD PRESSURE DECREASED [None]
  - CONFUSIONAL STATE [None]
  - MUSCLE RIGIDITY [None]
  - MUSCLE SPASMS [None]
  - RESTLESSNESS [None]
  - URTICARIA [None]
